FAERS Safety Report 9721159 (Version 2)
Quarter: 2014Q2

REPORT INFORMATION
  Report Type: Spontaneous
  Country: US (occurrence: US)
  Receive Date: 20131129
  Receipt Date: 20140508
  Transmission Date: 20141212
  Serious: No
  Sender: FDA-Public Use
  Company Number: US-B.I. PHARMACEUTICALS,INC./RIDGEFIELD-2013-BI-38150BP

PATIENT
  Age: 70 Year
  Sex: Female
  Weight: 120 kg

DRUGS (2)
  1. TRADJENTA [Suspect]
     Indication: TYPE 2 DIABETES MELLITUS
     Dosage: 5 MG
     Route: 048
     Dates: start: 20130412, end: 20130512
  2. ULORIC [Concomitant]
     Indication: GOUT
     Route: 065

REACTIONS (1)
  - Gout [Recovered/Resolved]
